FAERS Safety Report 8843479 (Version 1)
Quarter: 2012Q4

REPORT INFORMATION
  Report Type: 
  Country: US (occurrence: US)
  Receive Date: 20121016
  Receipt Date: 20121016
  Transmission Date: 20130627
  Serious: Yes (Other)
  Sender: FDA-Public Use
  Company Number: US-MYLANLABS-2012S1020693

PATIENT
  Age: 22 Year
  Sex: Female

DRUGS (2)
  1. LITHIUM [Suspect]
     Indication: BIPOLAR DISORDER
     Route: 065
  2. CIPROFLOXACIN [Concomitant]
     Indication: ESCHERICHIA URINARY TRACT INFECTION
     Route: 065

REACTIONS (1)
  - Renal tubular disorder [Recovered/Resolved]
